FAERS Safety Report 25059440 (Version 1)
Quarter: 2025Q1

REPORT INFORMATION
  Report Type: Spontaneous
  Country: US (occurrence: US)
  Receive Date: 20250310
  Receipt Date: 20250310
  Transmission Date: 20250408
  Serious: Yes (Other)
  Sender: GLAXOSMITHKLINE
  Company Number: US-GLAXOSMITHKLINE INC-US2025026037

PATIENT

DRUGS (2)
  1. TRELEGY ELLIPTA [Suspect]
     Active Substance: FLUTICASONE FUROATE\UMECLIDINIUM BROMIDE\VILANTEROL TRIFENATATE
     Indication: Asthma
     Dosage: 1 PUFF(S), QD, 200MCG/62.5MCG/25MCG
     Route: 055
     Dates: start: 20220405
  2. Several [Concomitant]
     Indication: Asthma

REACTIONS (1)
  - Syncope [Recovered/Resolved with Sequelae]

NARRATIVE: CASE EVENT DATE: 20220405
